FAERS Safety Report 14827929 (Version 1)
Quarter: 2018Q2

REPORT INFORMATION
  Report Type: Spontaneous
  Country: GB (occurrence: GB)
  Receive Date: 20180430
  Receipt Date: 20180430
  Transmission Date: 20180711
  Serious: Yes (Life-Threatening, Hospitalization)
  Sender: FDA-Public Use
  Company Number: GB-JNJFOC-20180432527

PATIENT
  Age: 55 Year
  Sex: Female

DRUGS (1)
  1. INFLIXIMAB, RECOMBINANT [Suspect]
     Active Substance: INFLIXIMAB
     Indication: PRODUCT USED FOR UNKNOWN INDICATION
     Dosage: REACTION AFTER 5TH INFUSION
     Route: 042

REACTIONS (3)
  - Acute coronary syndrome [Recovered/Resolved]
  - Angina pectoris [Recovered/Resolved]
  - Acute myocardial infarction [Recovered/Resolved]
